FAERS Safety Report 6417691-6 (Version None)
Quarter: 2009Q4

REPORT INFORMATION
  Report Type: 
  Country: None (occurrence: None)
  Receive Date: 20091028
  Receipt Date: 20091023
  Transmission Date: 20100525
  Serious: Yes (Death)
  Sender: FDA-Public Use
  Company Number: US-GILEAD-2009-0025002

PATIENT
  Sex: Female

DRUGS (10)
  1. LETAIRIS [Suspect]
     Indication: PULMONARY ARTERIAL HYPERTENSION
     Route: 048
     Dates: start: 20080521, end: 20091007
  2. COZAAR [Concomitant]
  3. LASIX [Concomitant]
  4. ASPIRIN [Concomitant]
  5. REVATIO [Concomitant]
  6. IMDUR [Concomitant]
  7. ADVAIR DISKUS 100/50 [Concomitant]
  8. MULTI-VITAMINS [Concomitant]
  9. FOSAMAX [Concomitant]
  10. PREDNISONE TAB [Concomitant]

REACTIONS (1)
  - SARCOIDOSIS [None]
